FAERS Safety Report 19864993 (Version 1)
Quarter: 2021Q3

REPORT INFORMATION
  Report Type: Spontaneous
  Country: US (occurrence: US)
  Receive Date: 20210921
  Receipt Date: 20210921
  Transmission Date: 20211014
  Serious: Yes (Death)
  Sender: FDA-Public Use
  Company Number: None

PATIENT
  Age: 60 Year
  Sex: Male
  Weight: 78.75 kg

DRUGS (1)
  1. PEPTO?BISMOL [Suspect]
     Active Substance: BISMUTH SUBSALICYLATE
     Indication: DYSPEPSIA
     Route: 048
     Dates: end: 20180601

REACTIONS (2)
  - Gastrointestinal haemorrhage [None]
  - Haematemesis [None]

NARRATIVE: CASE EVENT DATE: 20180601
